FAERS Safety Report 6775781-2 (Version None)
Quarter: 2010Q2

REPORT INFORMATION
  Report Type: 
  Country: None (occurrence: None)
  Receive Date: 20100617
  Receipt Date: 20100607
  Transmission Date: 20101027
  Serious: Yes (Hospitalization, Other)
  Sender: FDA-Public Use
  Company Number: BR-ABBOTT-09P-020-0610937-00

PATIENT
  Sex: Male
  Weight: 85 kg

DRUGS (7)
  1. HUMIRA [Suspect]
     Indication: RHEUMATOID ARTHRITIS
     Route: 058
  2. METHOTREXATE [Concomitant]
     Indication: RHEUMATOID ARTHRITIS
     Route: 048
  3. SULFASALAZINE [Concomitant]
     Indication: RHEUMATOID ARTHRITIS
     Route: 048
     Dates: start: 20050101
  4. METICORTEN [Concomitant]
     Indication: ANTIINFLAMMATORY THERAPY
     Route: 048
  5. CALCIUM/VITAMIN D/ FOLIC ACID (500UN/400UN/0.5MG) [Concomitant]
     Indication: BONE DISORDER
     Route: 048
  6. ENALABAL [Concomitant]
     Indication: HYPERTENSION
     Route: 048
  7. ARAVA [Concomitant]
     Indication: RHEUMATOID ARTHRITIS
     Route: 048

REACTIONS (3)
  - ARTHRITIS INFECTIVE [None]
  - CARTILAGE INJURY [None]
  - DRUG INEFFECTIVE [None]
